FAERS Safety Report 9136261 (Version 2)
Quarter: 2013Q3

REPORT INFORMATION
  Report Type: Report from Study
  Country: KR (occurrence: KR)
  Receive Date: 20130304
  Receipt Date: 20130905
  Transmission Date: 20140515
  Serious: Yes (Death)
  Sender: FDA-Public Use
  Company Number: KR-GLAXOSMITHKLINE-B0871219A

PATIENT
  Age: 16 Year
  Sex: Male
  Weight: 52.3 kg

DRUGS (14)
  1. NELARABINE [Suspect]
     Dosage: 982MG CYCLIC
     Dates: start: 20130213
  2. CAPRIL [Concomitant]
     Indication: HYPERTENSION
     Dosage: 150MG PER DAY
     Route: 048
     Dates: start: 20130108, end: 20130222
  3. SEPTRIM [Concomitant]
     Indication: ANTIFUNGAL PROPHYLAXIS
     Dosage: 4TAB TWICE PER DAY
     Route: 048
     Dates: start: 20130114, end: 20130217
  4. SODIUM BICARBONATE [Concomitant]
     Dosage: 40MEQ AS REQUIRED
     Route: 042
     Dates: start: 20130214, end: 20130219
  5. TYLENOL [Concomitant]
     Indication: ANTIPYRESIS
     Dosage: 3900MG THREE TIMES PER DAY
     Route: 048
     Dates: start: 20130212, end: 20130219
  6. EXJADE [Concomitant]
     Dosage: 660MG PER DAY
     Route: 048
     Dates: start: 20130128, end: 20130222
  7. MAGNESIUM [Concomitant]
     Dosage: 4G PER DAY
     Route: 042
     Dates: start: 20130213, end: 20130218
  8. ONDANSETRON [Concomitant]
     Indication: VOMITING
     Dosage: 8MG PER DAY
     Route: 042
     Dates: start: 20130213, end: 20130217
  9. CALCIUM CARBONATE [Concomitant]
     Dosage: 3000MG THREE TIMES PER DAY
     Route: 048
     Dates: start: 20130214, end: 20130223
  10. UNKNOWN [Concomitant]
     Indication: INFECTION PROPHYLAXIS
     Dosage: 2G TWICE PER DAY
     Route: 042
     Dates: start: 20130212, end: 20130217
  11. ISEPAMICIN [Concomitant]
     Indication: INFECTION PROPHYLAXIS
     Dosage: 400MG TWICE PER DAY
     Route: 042
     Dates: start: 20130212, end: 20130217
  12. ZYLORIC [Concomitant]
     Indication: TUMOUR LYSIS SYNDROME
     Dosage: 450MG THREE TIMES PER DAY
     Route: 042
     Dates: start: 20130213, end: 20130213
  13. UNKNOWN [Concomitant]
     Dosage: 9MG PER DAY
     Route: 042
     Dates: start: 20130213, end: 20130213
  14. SODIUM BICARBONATE [Concomitant]
     Indication: TUMOUR LYSIS SYNDROME
     Route: 042
     Dates: start: 20130213, end: 20130218

REACTIONS (3)
  - Sepsis [Fatal]
  - Somnolence [Fatal]
  - Pancreatitis [Fatal]
